FAERS Safety Report 15073225 (Version 1)
Quarter: 2018Q2

REPORT INFORMATION
  Report Type: Spontaneous
  Country: US (occurrence: US)
  Receive Date: 20180627
  Receipt Date: 20180627
  Transmission Date: 20180711
  Serious: Yes (Other)
  Sender: FDA-Public Use
  Company Number: US-ORPHAN EUROPE-2050023

PATIENT
  Age: 7 Year
  Sex: Male

DRUGS (12)
  1. FRAGMIN [Concomitant]
     Active Substance: DALTEPARIN SODIUM
  2. OXCARBAZEPINE. [Concomitant]
     Active Substance: OXCARBAZEPINE
  3. CYSTADANE [Suspect]
     Active Substance: BETAINE
     Indication: HOMOCYSTINURIA
     Route: 048
     Dates: start: 201202
  4. LAMOTRIGINE. [Concomitant]
     Active Substance: LAMOTRIGINE
  5. METHIONINE [Concomitant]
     Active Substance: METHIONINE
  6. FAMOTIDINE. [Concomitant]
     Active Substance: FAMOTIDINE
  7. HYDROXOCOBALAMIN [Concomitant]
     Active Substance: HYDROXOCOBALAMIN
  8. MIRALAX [Concomitant]
     Active Substance: POLYETHYLENE GLYCOL 3350
  9. ZONISAMIDE. [Concomitant]
     Active Substance: ZONISAMIDE
  10. LEUCOVORIN. [Concomitant]
     Active Substance: LEUCOVORIN
  11. LEVOCARNITINE. [Concomitant]
     Active Substance: LEVOCARNITINE
  12. RIBOFLAVIN [Concomitant]
     Active Substance: RIBOFLAVIN

REACTIONS (3)
  - Seizure [Not Recovered/Not Resolved]
  - Vomiting [Not Recovered/Not Resolved]
  - Drug dose omission [Not Recovered/Not Resolved]

NARRATIVE: CASE EVENT DATE: 20180529
